FAERS Safety Report 6634261-5 (Version None)
Quarter: 2010Q1

REPORT INFORMATION
  Report Type: 
  Country: None (occurrence: None)
  Receive Date: 20100315
  Receipt Date: 20100304
  Transmission Date: 20100710
  Serious: Yes (Hospitalization)
  Sender: FDA-Public Use
  Company Number: GB-ASTRAZENECA-2010SE09855

PATIENT
  Sex: Female

DRUGS (1)
  1. ARIMIDEX [Suspect]
     Indication: BREAST CANCER
     Route: 048

REACTIONS (6)
  - ABDOMINAL DISCOMFORT [None]
  - BONE PAIN [None]
  - CYSTITIS [None]
  - HIP ARTHROPLASTY [None]
  - OSTEOARTHRITIS [None]
  - OSTEOPOROSIS [None]
